FAERS Safety Report 12009717 (Version 1)
Quarter: 2016Q1

REPORT INFORMATION
  Report Type: Spontaneous
  Country: US (occurrence: None)
  Receive Date: 20160204
  Receipt Date: 20160204
  Transmission Date: 20160526
  Serious: Yes (Death)
  Sender: FDA-Public Use
  Company Number: None

PATIENT
  Age: 87 Year
  Sex: Male

DRUGS (11)
  1. PREDNISONE. [Concomitant]
     Active Substance: PREDNISONE
  2. TRAMADOL. [Concomitant]
     Active Substance: TRAMADOL
  3. LEVOFLOXACIN. [Concomitant]
     Active Substance: LEVOFLOXACIN
  4. QUETIAPINE [Concomitant]
     Active Substance: QUETIAPINE
  5. SENNA S [Concomitant]
     Active Substance: DOCUSATE SODIUM\SENNA LEAF
  6. FUROSEMIDE. [Concomitant]
     Active Substance: FUROSEMIDE
  7. LORAZEPAM. [Concomitant]
     Active Substance: LORAZEPAM
  8. MUCINEX [Concomitant]
     Active Substance: GUAIFENESIN
  9. TOBRAMYCIN AKRON INC [Suspect]
     Active Substance: TOBRAMYCIN
     Indication: PRODUCT USED FOR UNKNOWN INDICATION
     Dosage: 300MG/5ML 2X DAILY NEBULIZER
  10. LACTULOSE. [Concomitant]
     Active Substance: LACTULOSE
  11. PT CL MICRO TAB [Concomitant]

REACTIONS (1)
  - Death [None]

NARRATIVE: CASE EVENT DATE: 20160201
